FAERS Safety Report 8271374-9 (Version None)
Quarter: 2012Q2

REPORT INFORMATION
  Report Type: 
  Country: None (occurrence: None)
  Receive Date: 20120410
  Receipt Date: 20120210
  Transmission Date: 20120825
  Serious: No
  Sender: FDA-Public Use
  Company Number: US-NOVEN-12US004080

PATIENT
  Sex: Male

DRUGS (2)
  1. FENTANYL CITRATE [Suspect]
     Indication: PAIN
     Dosage: 25 UG/HR EVERY 72 HRS
     Route: 062
  2. FENTANYL CITRATE [Suspect]
     Dosage: 50 UG/HR EVERY 72 HRS
     Route: 063
     Dates: start: 20120201

REACTIONS (2)
  - DYSPNOEA [None]
  - INADEQUATE ANALGESIA [None]
